FAERS Safety Report 9630941 (Version 1)
Quarter: 2013Q4

REPORT INFORMATION
  Report Type: Spontaneous
  Country: US (occurrence: None)
  Receive Date: 20131016
  Receipt Date: 20131016
  Transmission Date: 20140711
  Serious: Yes (Disabling)
  Sender: FDA-Public Use
  Company Number: None

PATIENT
  Age: 55 None
  Sex: Female

DRUGS (6)
  1. LEVOFLOXACIN [Suspect]
     Indication: SINUSITIS
     Dosage: 7 PILLS ONCE A DAY BY MOUTH
     Route: 048
     Dates: start: 20130218, end: 20130223
  2. COMPOUNDED HORMONE REPLACEMENT THERAPY [Concomitant]
  3. MULTIVITAMIN [Concomitant]
  4. FISH OIL [Concomitant]
  5. NIACIN [Concomitant]
  6. VITAMIN D [Concomitant]

REACTIONS (4)
  - Pain in extremity [None]
  - Arthralgia [None]
  - Arthritis [None]
  - Gait disturbance [None]
